FAERS Safety Report 5959914-3 (Version None)
Quarter: 2008Q4

REPORT INFORMATION
  Report Type: 
  Country: None (occurrence: None)
  Receive Date: 20081120
  Receipt Date: 20081112
  Transmission Date: 20090506
  Serious: Yes (Hospitalization, Other)
  Sender: FDA-Public Use
  Company Number: US-BIOGENIDEC-2008BI013646

PATIENT
  Age: 37 Year
  Sex: Female
  Weight: 56 kg

DRUGS (2)
  1. TYSABRI [Suspect]
     Indication: MULTIPLE SCLEROSIS
     Route: 042
     Dates: start: 20060915, end: 20070312
  2. TYSABRI [Suspect]
     Route: 042
     Dates: start: 20080424, end: 20080522

REACTIONS (3)
  - ANAPHYLACTIC SHOCK [None]
  - HEADACHE [None]
  - INFUSION RELATED REACTION [None]
